FAERS Safety Report 9921913 (Version 1)
Quarter: 2014Q1

REPORT INFORMATION
  Report Type: Other
  Country: GB (occurrence: GB)
  Receive Date: 20140225
  Receipt Date: 20140225
  Transmission Date: 20141002
  Serious: Yes (Other)
  Sender: FDA-Public Use
  Company Number: GB-BRISTOL-MYERS SQUIBB COMPANY-20304788

PATIENT
  Age: 49 Year
  Sex: Male

DRUGS (7)
  1. CETUXIMAB [Suspect]
     Indication: ACINAR CELL CARCINOMA OF PANCREAS
     Dosage: UN-JAN2002,UN-NOV2003,UN-MAY2006,UN-APR2005,UN-FEB2005,UN-APR2005
  2. CARBOPLATIN [Suspect]
     Indication: ACINAR CELL CARCINOMA OF PANCREAS
     Dosage: UN-JUL-2006,UN-APR-2008
  3. DOCETAXEL [Suspect]
     Indication: ACINAR CELL CARCINOMA OF PANCREAS
     Dosage: UN-JAN2002
  4. IRINOTECAN [Suspect]
     Indication: ACINAR CELL CARCINOMA OF PANCREAS
     Dosage: UN-JAN2002.
  5. GEMCITABINE [Suspect]
     Indication: ACINAR CELL CARCINOMA OF PANCREAS
     Dosage: UN-OCT2003,UN-APR2008,UN-FEB2009,UN-APR2009,UN-MAR2010
  6. OXALIPLATIN [Suspect]
     Indication: ACINAR CELL CARCINOMA OF PANCREAS
     Dosage: UN-OCT2003,UN-JUL-2006
  7. BEVACIZUMAB [Suspect]
     Indication: ACINAR CELL CARCINOMA OF PANCREAS
     Dosage: UN-APR-2008,UN-FEB-2009

REACTIONS (6)
  - Abdominal sepsis [Unknown]
  - Liver disorder [Unknown]
  - Malignant neoplasm progression [Unknown]
  - Neutropenia [Unknown]
  - Proteinuria [Unknown]
  - Off label use [Unknown]
